FAERS Safety Report 22110239 (Version 1)
Quarter: 2023Q1

REPORT INFORMATION
  Report Type: Spontaneous
  Country: AU (occurrence: AU)
  Receive Date: 20230317
  Receipt Date: 20230317
  Transmission Date: 20230418
  Serious: Yes (Other)
  Sender: FDA-Public Use
  Company Number: AU-AMGEN-AUSSP2023041226

PATIENT
  Age: 69 Year
  Sex: Male

DRUGS (5)
  1. NPLATE [Suspect]
     Active Substance: ROMIPLOSTIM
     Indication: Product used for unknown indication
     Dosage: UNK
     Route: 065
  2. MYCOPHENOLATE MOFETIL [Concomitant]
     Active Substance: MYCOPHENOLATE MOFETIL
  3. Csa [Concomitant]
  4. AZATHIOPRINE [Concomitant]
     Active Substance: AZATHIOPRINE
  5. ENOXAPARIN SODIUM [Concomitant]
     Active Substance: ENOXAPARIN SODIUM
     Dosage: 1.5 MILLIGRAM/KILOGRAM, QD

REACTIONS (2)
  - Pulmonary embolism [Unknown]
  - Peripheral vein thrombosis [Unknown]
